FAERS Safety Report 8418249 (Version 4)
Quarter: 2013Q2

REPORT INFORMATION
  Report Type: Spontaneous
  Country: US (occurrence: None)
  Receive Date: 20120208
  Receipt Date: 20130521
  Transmission Date: 20140414
  Serious: Yes (Hospitalization, Other)
  Sender: FDA-Public Use
  Company Number: KAD201201-000096

PATIENT
  Age: 54 Year
  Sex: Male
  Weight: 69.68 kg

DRUGS (15)
  1. RIBAVIRIN [Suspect]
     Indication: HEPATITIS C
     Dosage: 1000 MG, 3 PILLS MORNING AND 2 PILLS EVENING; 600 MG, 3 PILLS EVERY DAY
     Dates: start: 201110
  2. INCIVEK [Suspect]
     Indication: HEPATITIS C
     Dosage: TW=O DOSES THREE TIMES DAILY, ORAL
     Route: 048
     Dates: start: 201110
  3. PEGASYS [Suspect]
     Indication: HEPATITIS C
     Dosage: 180 MCG A WEEK, SUBCUTANEOUS
     Route: 058
     Dates: start: 201110
  4. LOSARTAN POTASSIUM [Concomitant]
  5. CARAFATE [Concomitant]
  6. FLONASE [Concomitant]
  7. MICARDIS [Concomitant]
  8. SYMBICORT [Concomitant]
  9. HYDROCHLOROTHIAZIDE [Concomitant]
  10. NEXIUM [Concomitant]
  11. SPIRIVA [Concomitant]
  12. CALCIUM VITAMIN D [Concomitant]
  13. XOPENEX [Concomitant]
  14. POTASSIUM [Concomitant]
  15. XANAX [Concomitant]

REACTIONS (26)
  - ASTHMA [None]
  - CONDITION AGGRAVATED [None]
  - WHITE BLOOD CELL COUNT DECREASED [None]
  - ANAEMIA [None]
  - FATIGUE [None]
  - DRY SKIN [None]
  - DRY MOUTH [None]
  - DYSGEUSIA [None]
  - PAIN [None]
  - DIARRHOEA [None]
  - ABDOMINAL PAIN UPPER [None]
  - PYREXIA [None]
  - NAUSEA [None]
  - VOMITING [None]
  - WEIGHT DECREASED [None]
  - ARTHRALGIA [None]
  - SYNCOPE [None]
  - BLOOD POTASSIUM ABNORMAL [None]
  - ADVERSE EVENT [None]
  - PANCREATITIS [None]
  - MOOD SWINGS [None]
  - ALOPECIA [None]
  - IRRITABILITY [None]
  - ANXIETY [None]
  - MALAISE [None]
  - DRUG HYPERSENSITIVITY [None]
